FAERS Safety Report 7128730-1 (Version None)
Quarter: 2010Q4

REPORT INFORMATION
  Report Type: 
  Country: None (occurrence: None)
  Receive Date: 20101130
  Receipt Date: 20101116
  Transmission Date: 20110411
  Serious: Yes (Other)
  Sender: FDA-Public Use
  Company Number: PHHY2010US79230

PATIENT
  Sex: Female

DRUGS (9)
  1. EXJADE [Suspect]
     Indication: LYMPHOMA
     Dosage: 1375MG, DAILY
     Route: 048
     Dates: start: 20100825
  2. SPIRONOLACTONE [Concomitant]
  3. MELOXICAM [Concomitant]
  4. VITAMIN D [Concomitant]
  5. RECLAST [Concomitant]
  6. TRAMADOL HCL [Concomitant]
  7. GABAPENTIN [Concomitant]
  8. XANAX [Concomitant]
  9. LASIX [Concomitant]

REACTIONS (3)
  - BACK INJURY [None]
  - FALL [None]
  - LOSS OF CONSCIOUSNESS [None]
